FAERS Safety Report 10080846 (Version 1)
Quarter: 2014Q2

REPORT INFORMATION
  Report Type: Spontaneous
  Country: US (occurrence: None)
  Receive Date: 20140415
  Receipt Date: 20140415
  Transmission Date: 20141212
  Serious: No
  Sender: FDA-Public Use
  Company Number: None

PATIENT
  Age: 52 Year
  Sex: Female
  Weight: 90.72 kg

DRUGS (1)
  1. QUETIAPINE [Suspect]
     Dosage: 25 MG 1 BID ORAL
     Route: 048

REACTIONS (7)
  - Nausea [None]
  - Insomnia [None]
  - Hypoaesthesia oral [None]
  - Heart rate increased [None]
  - Limb discomfort [None]
  - Drug intolerance [None]
  - Product substitution issue [None]
